FAERS Safety Report 6709300-3 (Version None)
Quarter: 2010Q2

REPORT INFORMATION
  Report Type: 
  Country: None (occurrence: None)
  Receive Date: 20100504
  Receipt Date: 20100429
  Transmission Date: 20101027
  Serious: Yes (Hospitalization, Other)
  Sender: FDA-Public Use
  Company Number: US-ELI_LILLY_AND_COMPANY-US201004008608

PATIENT
  Sex: Male

DRUGS (5)
  1. HUMALOG [Suspect]
     Indication: DIABETES MELLITUS
     Dosage: UNK, 3/D
     Dates: start: 20050101
  2. HUMULIN R [Suspect]
     Dates: start: 19840101, end: 20050101
  3. HUMULIN N [Suspect]
     Dates: start: 19840101, end: 20050101
  4. BYETTA [Concomitant]
  5. LANTUS [Concomitant]

REACTIONS (12)
  - BLINDNESS [None]
  - CEREBRAL HAEMORRHAGE [None]
  - CORONARY ARTERY BYPASS [None]
  - EPILEPSY [None]
  - EYE HAEMORRHAGE [None]
  - FOREIGN BODY IN EYE [None]
  - PARALYSIS [None]
  - ROAD TRAFFIC ACCIDENT [None]
  - STENT PLACEMENT [None]
  - VISION BLURRED [None]
  - VISUAL ACUITY REDUCED [None]
  - VISUAL IMPAIRMENT [None]
